FAERS Safety Report 23299243 (Version 1)
Quarter: 2023Q4

REPORT INFORMATION
  Report Type: Other
  Country: US (occurrence: US)
  Receive Date: 20231215
  Receipt Date: 20231215
  Transmission Date: 20240110
  Serious: No
  Sender: FDA-Public Use
  Company Number: US-TOLMAR, INC.-23US045342

PATIENT
  Age: 8 Year
  Sex: Male

DRUGS (2)
  1. FENSOLVI [Suspect]
     Active Substance: LEUPROLIDE ACETATE
     Indication: Precocious puberty
     Dosage: 45 MILLIGRAM
     Route: 058
     Dates: start: 20231113
  2. DEVICE [Suspect]
     Active Substance: DEVICE
     Indication: Precocious puberty
     Dosage: UNK

REACTIONS (2)
  - Injection site bruising [Unknown]
  - Injection site pain [Unknown]

NARRATIVE: CASE EVENT DATE: 20231120
